FAERS Safety Report 11937301 (Version 3)
Quarter: 2016Q1

REPORT INFORMATION
  Report Type: Report from Study
  Country: US (occurrence: US)
  Receive Date: 20160121
  Receipt Date: 20160201
  Transmission Date: 20160526
  Serious: Yes (Death, Hospitalization, Other)
  Sender: FDA-Public Use
  Company Number: US-GILEAD-2016-0193820

PATIENT
  Age: 84 Year
  Sex: Male

DRUGS (1)
  1. IDELALISIB [Suspect]
     Active Substance: IDELALISIB
     Indication: NON-HODGKIN^S LYMPHOMA
     Dosage: 150 MG, BID
     Route: 048
     Dates: start: 20151125, end: 20151223

REACTIONS (4)
  - Confusional state [Unknown]
  - Asthenia [Unknown]
  - Pyrexia [Unknown]
  - Disease progression [Fatal]

NARRATIVE: CASE EVENT DATE: 20160109
